FAERS Safety Report 13676080 (Version 3)
Quarter: 2017Q4

REPORT INFORMATION
  Report Type: Report from Study
  Country: US (occurrence: US)
  Receive Date: 20170622
  Receipt Date: 20171117
  Transmission Date: 20180320
  Serious: No
  Sender: FDA-Public Use
  Company Number: PHEH2017US018968

PATIENT
  Weight: 108.8 kg

DRUGS (2)
  1. COSENTYX [Suspect]
     Active Substance: SECUKINUMAB
     Indication: PSORIASIS
  2. COSENTYX [Suspect]
     Active Substance: SECUKINUMAB
     Indication: PSORIATIC ARTHROPATHY
     Dosage: 300 MG, QMO  (2 PENS AT DAY 28, DOSE 5 THEN Q 4 WEEKS)
     Route: 058

REACTIONS (2)
  - Incorrect dose administered [Unknown]
  - Nasopharyngitis [Unknown]
